FAERS Safety Report 17244175 (Version 2)
Quarter: 2020Q1

REPORT INFORMATION
  Report Type: Report from Study
  Country: US (occurrence: US)
  Receive Date: 20200107
  Receipt Date: 20200113
  Transmission Date: 20200409
  Serious: Yes (Death)
  Sender: FDA-Public Use
  Company Number: US-BAUSCH-BL-2020-000487

PATIENT
  Sex: Female

DRUGS (1)
  1. XIFAXAN [Suspect]
     Active Substance: RIFAXIMIN
     Indication: PRODUCT USED FOR UNKNOWN INDICATION
     Route: 065
     Dates: start: 201903

REACTIONS (8)
  - Hyperthyroidism [Fatal]
  - Gastric ulcer [Fatal]
  - Dialysis [Fatal]
  - Gastrointestinal haemorrhage [Fatal]
  - Hepatic cirrhosis [Fatal]
  - Diabetes mellitus [Fatal]
  - End stage renal disease [Fatal]
  - Anaemia [Fatal]
